FAERS Safety Report 20612922 (Version 11)
Quarter: 2025Q2

REPORT INFORMATION
  Report Type: Report from Study
  Country: CA (occurrence: CA)
  Receive Date: 20220318
  Receipt Date: 20250605
  Transmission Date: 20250716
  Serious: Yes (Hospitalization, Other)
  Sender: TAKEDA
  Company Number: CA-TAKEDA-2021TUS019448

PATIENT
  Age: 62 Year
  Sex: Male

DRUGS (9)
  1. VEDOLIZUMAB [Suspect]
     Active Substance: VEDOLIZUMAB
     Indication: Crohn^s disease
  2. VEDOLIZUMAB [Suspect]
     Active Substance: VEDOLIZUMAB
  3. VEDOLIZUMAB [Suspect]
     Active Substance: VEDOLIZUMAB
  4. VEDOLIZUMAB [Suspect]
     Active Substance: VEDOLIZUMAB
  5. VEDOLIZUMAB [Suspect]
     Active Substance: VEDOLIZUMAB
  6. VEDOLIZUMAB [Suspect]
     Active Substance: VEDOLIZUMAB
  7. VEDOLIZUMAB [Suspect]
     Active Substance: VEDOLIZUMAB
     Dosage: 300 MILLIGRAM, Q4WEEKS
     Dates: start: 20210809
  8. VEDOLIZUMAB [Suspect]
     Active Substance: VEDOLIZUMAB
  9. MESALAMINE [Concomitant]
     Active Substance: MESALAMINE

REACTIONS (16)
  - Chronic obstructive pulmonary disease [Recovered/Resolved]
  - Influenza like illness [Recovered/Resolved]
  - Pneumothorax spontaneous [Recovered/Resolved]
  - Respiratory disorder [Unknown]
  - Dyspnoea [Recovering/Resolving]
  - Pneumonia [Recovering/Resolving]
  - Weight decreased [Unknown]
  - Illness [Recovering/Resolving]
  - Sputum discoloured [Unknown]
  - Skin laceration [Not Recovered/Not Resolved]
  - Wound haemorrhage [Not Recovered/Not Resolved]
  - Respiratory fume inhalation disorder [Recovered/Resolved]
  - Off label use [Recovering/Resolving]
  - Asthenia [Unknown]
  - Pain in extremity [Recovered/Resolved]
  - Fatigue [Recovered/Resolved]

NARRATIVE: CASE EVENT DATE: 20210809
